FAERS Safety Report 25928419 (Version 2)
Quarter: 2025Q4

REPORT INFORMATION
  Report Type: Other
  Country: GB (occurrence: GB)
  Receive Date: 20251016
  Receipt Date: 20251016
  Transmission Date: 20260118
  Serious: Yes (Other)
  Sender: STRIDES
  Company Number: None

PATIENT
  Age: 76 Year
  Sex: Female
  Weight: 58 kg

DRUGS (2)
  1. OXYBUTYNIN [Suspect]
     Active Substance: OXYBUTYNIN
     Indication: Product used for unknown indication
     Dosage: 1 DOSAGE FORM, EVERY 12 HRS
     Route: 048
     Dates: start: 20250703, end: 20250904
  2. NITROFURANTOIN [Concomitant]
     Active Substance: NITROFURANTOIN
     Indication: Product used for unknown indication
     Dosage: 1 DOSAGE FORM, EVERY 12 HRS
     Route: 048
     Dates: start: 20250918

REACTIONS (8)
  - Brain fog [Unknown]
  - Depressed level of consciousness [Unknown]
  - Amnesia [Unknown]
  - Swelling face [Unknown]
  - Infection [Unknown]
  - Defaecation urgency [Unknown]
  - Musculoskeletal pain [Unknown]
  - Dysgeusia [Unknown]
